FAERS Safety Report 9511576 (Version 1)
Quarter: 2013Q3

REPORT INFORMATION
  Report Type: Spontaneous
  Country: US (occurrence: None)
  Receive Date: 20130906
  Receipt Date: 20130906
  Transmission Date: 20140515
  Serious: Yes (Hospitalization)
  Sender: FDA-Public Use
  Company Number: 20130476

PATIENT
  Age: 36 Year
  Sex: Female

DRUGS (2)
  1. FERINJECT [Suspect]
     Indication: IRON DEFICIENCY ANAEMIA
     Dosage: 1000 MG OVER 1 HOUR
     Route: 041
     Dates: start: 20130514, end: 20130514
  2. FERINJECT [Suspect]
     Indication: MALABSORPTION
     Dosage: 1000 MG OVER 1 HOUR
     Route: 041
     Dates: start: 20130514, end: 20130514

REACTIONS (6)
  - Malaise [None]
  - Erythema [None]
  - Pruritus [None]
  - Rash [None]
  - Paraesthesia [None]
  - Dyspnoea [None]
